FAERS Safety Report 7733702-X (Version None)
Quarter: 2011Q3

REPORT INFORMATION
  Report Type: 
  Country: None (occurrence: None)
  Receive Date: 20110901
  Receipt Date: 20110819
  Transmission Date: 20111222
  Serious: Yes (Death)
  Sender: FDA-Public Use
  Company Number: 2011BN000079

PATIENT
  Age: 72 Year
  Sex: Female

DRUGS (10)
  1. CYTARABINE [Suspect]
     Indication: PERIPHERAL T-CELL LYMPHOMA UNSPECIFIED STAGE III
  2. PREDNISONE [Concomitant]
  3. DOXORUBICIN HCL [Concomitant]
  4. CARMUSTINE [Suspect]
     Indication: PERIPHERAL T-CELL LYMPHOMA UNSPECIFIED STAGE III
  5. ETOPOSIDE [Suspect]
     Indication: PERIPHERAL T-CELL LYMPHOMA UNSPECIFIED STAGE III
  6. ETOPOSIDE [Concomitant]
  7. MELPHALAN HYDROCHLORIDE [Suspect]
     Indication: PERIPHERAL T-CELL LYMPHOMA UNSPECIFIED STAGE III
  8. ALEMTUZUMAB [Suspect]
     Indication: STEM CELL TRANSPLANT
     Dosage: 3 MG;   ;IV  10 MG;  ;IV  30 MG;  ;IV
     Route: 042
  9. VINCRISTINE [Concomitant]
  10. CYCLOPHOSPHAMIDE [Concomitant]

REACTIONS (12)
  - FATIGUE [None]
  - DEHYDRATION [None]
  - CYTOMEGALOVIRUS VIRAEMIA [None]
  - PANCYTOPENIA [None]
  - ASTHENIA [None]
  - BK VIRUS INFECTION [None]
  - FEBRILE NEUTROPENIA [None]
  - MUCOSAL INFLAMMATION [None]
  - MULTI-ORGAN FAILURE [None]
  - VIRAEMIA [None]
  - CLOSTRIDIUM DIFFICILE COLITIS [None]
  - PARAINFLUENZAE VIRUS INFECTION [None]
